FAERS Safety Report 6603093-6 (Version None)
Quarter: 2010Q1

REPORT INFORMATION
  Report Type: 
  Country: None (occurrence: None)
  Receive Date: 20100226
  Receipt Date: 20100217
  Transmission Date: 20100710
  Serious: Yes (Other)
  Sender: FDA-Public Use
  Company Number: US-PFIZER INC-2010021706

PATIENT
  Sex: Male
  Weight: 88.435 kg

DRUGS (5)
  1. LIPITOR [Suspect]
     Indication: BLOOD CHOLESTEROL
     Dosage: 20 MG, 1X/DAY
     Route: 048
     Dates: start: 20080101
  2. LIPITOR [Suspect]
     Dosage: 80 MG, 1X/DAY
     Dates: start: 20090301
  3. ZETIA [Concomitant]
     Dosage: 10 MG, UNK
  4. PLAVIX [Concomitant]
     Dosage: 75 MG, UNK
  5. TOPROL-XL [Concomitant]
     Dosage: 50 MG, UNK

REACTIONS (3)
  - BACK PAIN [None]
  - GAIT DISTURBANCE [None]
  - STENT PLACEMENT [None]
